FAERS Safety Report 4325693-9 (Version None)
Quarter: 2004Q1

REPORT INFORMATION
  Report Type: 
  Country: None (occurrence: None)
  Receive Date: 20040324
  Receipt Date: 20040315
  Transmission Date: 20041129
  Serious: Yes (Hospitalization, Disabling)
  Sender: FDA-Public Use
  Company Number: A044-002-004845

PATIENT
  Age: 84 Year
  Sex: Female
  Weight: 86 kg

DRUGS (4)
  1. ARICEPT [Suspect]
     Dosage: 10 M G, 1 IN 1 D, ORAL
     Route: 048
  2. PAROXETINE (PAROXETINE HYDROCHLORIDE) [Concomitant]
  3. BENDROFLUAZIDE (BENDROFLUMETHIAZIDE) [Concomitant]
  4. ATENOLOL [Concomitant]

REACTIONS (1)
  - PARKINSONISM [None]
